FAERS Safety Report 4264583-7 (Version None)
Quarter: 2004Q1

REPORT INFORMATION
  Report Type: 
  Country: None (occurrence: None)
  Receive Date: 20040106
  Receipt Date: 20031022
  Transmission Date: 20041129
  Serious: Yes (Death, Life-Threatening, Hospitalization)
  Sender: FDA-Public Use
  Company Number: JP-ROCHE-349729

PATIENT
  Age: 71 Year
  Sex: Male

DRUGS (8)
  1. NICARDIPINE HCL [Suspect]
     Route: 041
     Dates: start: 20030909, end: 20030920
  2. FAMOTIDINE [Concomitant]
     Indication: UPPER GASTROINTESTINAL HAEMORRHAGE
     Dosage: DOSE REPORTED AS 40 MG CONTINUOUS.
     Route: 041
     Dates: start: 20030828, end: 20030923
  3. GLYCEOL [Concomitant]
     Dosage: DOSE REPORTED AS 200 ML CONTINUOUS.
     Route: 041
     Dates: start: 20030828, end: 20030912
  4. DEXAMETHASONE [Concomitant]
     Dosage: DOSE REPORTED AS 8 MG CONTINUOUS.
     Route: 041
     Dates: start: 20030828, end: 20030923
  5. CISPLATIN [Concomitant]
     Dosage: DOSE REPORTED AS 30 MG CONTINUOUS.
     Route: 041
     Dates: start: 20030901, end: 20030904
  6. DACARBAZINE [Concomitant]
     Dosage: DOSE REPORTED AS 200 MG CONTINUOUS.
     Route: 041
     Dates: start: 20030902, end: 20030905
  7. VINDESINE SULFATE [Concomitant]
     Dosage: DOSE REPORTED AS 3 MG CONTINUOUS.
     Route: 041
     Dates: start: 20030902, end: 20030902
  8. CEFOTIAM HYDROCHLORIDE [Concomitant]
     Dosage: DOSE REPORTED AS 2 G CONTINUOUS.
     Route: 041
     Dates: start: 20030917, end: 20030920

REACTIONS (9)
  - BONE MARROW DISORDER [None]
  - DEPRESSED LEVEL OF CONSCIOUSNESS [None]
  - DYSPHAGIA [None]
  - HYPERCALCAEMIA [None]
  - METASTASES TO CENTRAL NERVOUS SYSTEM [None]
  - OESOPHAGEAL STENOSIS [None]
  - PLATELET COUNT DECREASED [None]
  - PNEUMONIA ASPIRATION [None]
  - SEPSIS [None]
